FAERS Safety Report 10381403 (Version 1)
Quarter: 2014Q3

REPORT INFORMATION
  Report Type: Spontaneous
  Country: US (occurrence: US)
  Receive Date: 20140813
  Receipt Date: 20140813
  Transmission Date: 20150326
  Serious: Yes (Hospitalization)
  Sender: FDA-Public Use
  Company Number: US-B.I. PHARMACEUTICALS,INC./RIDGEFIELD-2014-BI-36460BP

PATIENT
  Age: 72 Year
  Sex: Male

DRUGS (11)
  1. VITAMIN B12 [Concomitant]
     Active Substance: CYANOCOBALAMIN
     Dosage: 500 MCG
     Route: 048
  2. MULTAQ [Concomitant]
     Active Substance: DRONEDARONE
     Dosage: 800 MG
     Route: 048
  3. ARICEPT [Concomitant]
     Active Substance: DONEPEZIL HYDROCHLORIDE
     Dosage: 5 MG
     Route: 048
  4. CRESTOR [Concomitant]
     Active Substance: ROSUVASTATIN CALCIUM
     Dosage: 5 MG
     Route: 048
  5. BENEMID [Concomitant]
     Active Substance: PROBENECID
     Dosage: 1000 MG
     Route: 048
  6. OMEPRAZOLE. [Concomitant]
     Active Substance: OMEPRAZOLE
     Dosage: 20 MG
     Route: 048
  7. PRADAXA [Suspect]
     Active Substance: DABIGATRAN ETEXILATE MESYLATE
     Indication: ATRIAL FIBRILLATION
     Dosage: 300 MG
     Route: 048
     Dates: end: 20130218
  8. DIOVAN [Concomitant]
     Active Substance: VALSARTAN
     Dosage: 160 MG
     Route: 048
  9. BAYER [Concomitant]
     Active Substance: ASPIRIN
     Dosage: 81 MG
     Route: 048
  10. CALCITROL [Concomitant]
     Active Substance: CALCITRIOL
     Dosage: 0.5 MCG
     Route: 048
  11. TOPROL XL [Concomitant]
     Active Substance: METOPROLOL SUCCINATE
     Dosage: 50 MG
     Route: 048

REACTIONS (1)
  - Subdural haematoma [Unknown]

NARRATIVE: CASE EVENT DATE: 20130218
